FAERS Safety Report 24689890 (Version 2)
Quarter: 2024Q4

REPORT INFORMATION
  Report Type: Spontaneous
  Country: UY (occurrence: UY)
  Receive Date: 20241203
  Receipt Date: 20241205
  Transmission Date: 20250115
  Serious: No
  Sender: ROCHE
  Company Number: UY-ROCHE-10000139812

PATIENT
  Age: 55 Year
  Sex: Female

DRUGS (1)
  1. OCRELIZUMAB [Suspect]
     Active Substance: OCRELIZUMAB
     Indication: Primary progressive multiple sclerosis
     Dosage: DOSE AND FREQUENCY WERE NOT REPROTED
     Route: 065
     Dates: start: 202405

REACTIONS (1)
  - Demyelination [Unknown]
